FAERS Safety Report 10636366 (Version 1)
Quarter: 2014Q4

REPORT INFORMATION
  Report Type: Spontaneous
  Country: US (occurrence: US)
  Receive Date: 20141206
  Receipt Date: 20141206
  Transmission Date: 20150529
  Serious: No
  Sender: FDA-Public Use
  Company Number: US-GLAXOSMITHKLINE-A1070802A

PATIENT
  Age: 19 Year
  Sex: Male

DRUGS (2)
  1. VELTIN [Suspect]
     Active Substance: CLINDAMYCIN PHOSPHATE\TRETINOIN
     Indication: ACNE
     Route: 061
     Dates: start: 20140401
  2. MONODOX [Concomitant]
     Active Substance: DOXYCYCLINE

REACTIONS (3)
  - Hypoaesthesia oral [Not Recovered/Not Resolved]
  - Drug administration error [Unknown]
  - Lip swelling [Not Recovered/Not Resolved]

NARRATIVE: CASE EVENT DATE: 20140423
